FAERS Safety Report 11320899 (Version 2)
Quarter: 2015Q3

REPORT INFORMATION
  Report Type: Spontaneous
  Country: KR (occurrence: KR)
  Receive Date: 20150729
  Receipt Date: 20150807
  Transmission Date: 20151125
  Serious: Yes (Other)
  Sender: FDA-Public Use
  Company Number: KR-BAXALTA-2015BLT000643

PATIENT

DRUGS (19)
  1. ADVATE [Suspect]
     Active Substance: ANTIHEMOPHILIC FACTOR, HUMAN RECOMBINANT
     Indication: FACTOR VIII DEFICIENCY
     Dosage: ICH TREATMENT DOSE
     Route: 065
     Dates: start: 20150508, end: 20150513
  2. GREENMONO [Suspect]
     Active Substance: ANTIHEMOPHILIC FACTOR, HUMAN RECOMBINANT
     Indication: FACTOR VIII DEFICIENCY
     Dosage: UNK, CONTINUOUSLY FOR 1 MONTH
     Route: 065
     Dates: start: 20150514
  3. GREENMONO [Suspect]
     Active Substance: ANTIHEMOPHILIC FACTOR, HUMAN RECOMBINANT
     Dosage: 12 UNIT/KG/HR CIV
     Route: 065
     Dates: start: 20150518
  4. GREENMONO [Suspect]
     Active Substance: ANTIHEMOPHILIC FACTOR, HUMAN RECOMBINANT
     Dosage: 7 UNIT/KG/HR CIV
     Route: 065
     Dates: start: 20150519
  5. GREENMONO [Suspect]
     Active Substance: ANTIHEMOPHILIC FACTOR, HUMAN RECOMBINANT
     Dosage: 9 UNIT/KG/HR CIV
     Route: 065
     Dates: start: 20150522
  6. GREENMONO [Suspect]
     Active Substance: ANTIHEMOPHILIC FACTOR, HUMAN RECOMBINANT
     Dosage: 11 UNIT/KG/HR
     Route: 065
     Dates: start: 20150607
  7. GREENMONO [Suspect]
     Active Substance: ANTIHEMOPHILIC FACTOR, HUMAN RECOMBINANT
     Indication: HAEMORRHAGE
     Dosage: 500 IU, ONCE BOLUS
     Route: 065
     Dates: start: 20150514
  8. GREENMONO [Suspect]
     Active Substance: ANTIHEMOPHILIC FACTOR, HUMAN RECOMBINANT
     Dosage: 13 UNIT/KG/HR CIV
     Route: 065
     Dates: start: 20150529
  9. GREENMONO [Suspect]
     Active Substance: ANTIHEMOPHILIC FACTOR, HUMAN RECOMBINANT
     Dosage: 500 IU, BOLUS 3 TIMES
     Route: 065
     Dates: start: 20150608
  10. GREENMONO [Suspect]
     Active Substance: ANTIHEMOPHILIC FACTOR, HUMAN RECOMBINANT
     Dosage: 5 UNIT/KG/HR CONTINUED UNTIL DISCHARGE
     Route: 065
     Dates: start: 20150617
  11. GREENMONO [Suspect]
     Active Substance: ANTIHEMOPHILIC FACTOR, HUMAN RECOMBINANT
     Dosage: 10 UNIT/KG/HR CIV UNTIL POD 7DAYS TARGET 50%
     Route: 065
     Dates: start: 20150604
  12. GREENMONO [Suspect]
     Active Substance: ANTIHEMOPHILIC FACTOR, HUMAN RECOMBINANT
     Dosage: 6 UNIT/KG/HR CIV
     Route: 065
     Dates: start: 20150605
  13. GREENMONO [Suspect]
     Active Substance: ANTIHEMOPHILIC FACTOR, HUMAN RECOMBINANT
     Dosage: 500 IU, BOLUS 2 TIMES
     Route: 065
     Dates: start: 20150607
  14. ADVATE [Suspect]
     Active Substance: ANTIHEMOPHILIC FACTOR, HUMAN RECOMBINANT
     Indication: HAEMORRHAGE
  15. GREENMONO [Suspect]
     Active Substance: ANTIHEMOPHILIC FACTOR, HUMAN RECOMBINANT
     Dosage: 20 UNIT/KG/HR CIV UNTIL POD 7DAYS TARGET 100%
     Route: 065
     Dates: start: 20150601
  16. GREENMONO [Suspect]
     Active Substance: ANTIHEMOPHILIC FACTOR, HUMAN RECOMBINANT
     Dosage: 10 UNIT/KG/HR
     Route: 065
     Dates: start: 20150614
  17. GREENMONO [Suspect]
     Active Substance: ANTIHEMOPHILIC FACTOR, HUMAN RECOMBINANT
     Dosage: 10UNIT/KG/HR CIV
     Route: 065
     Dates: start: 20150514
  18. GREENMONO [Suspect]
     Active Substance: ANTIHEMOPHILIC FACTOR, HUMAN RECOMBINANT
     Dosage: 16.5 UNIT/KG/HR
     Route: 065
     Dates: start: 20150608
  19. GREENMONO [Suspect]
     Active Substance: ANTIHEMOPHILIC FACTOR, HUMAN RECOMBINANT
     Dosage: 16.5 UNIT/KG/HR
     Route: 065
     Dates: start: 20150609

REACTIONS (11)
  - Pyrexia [Unknown]
  - Rales [Unknown]
  - Parainfluenzae virus infection [Unknown]
  - Device related sepsis [Unknown]
  - Status epilepticus [Unknown]
  - Sepsis [Unknown]
  - Epilepsy [Unknown]
  - Factor VIII inhibition [Not Recovered/Not Resolved]
  - Wheezing [Unknown]
  - Haemorrhage [Unknown]
  - Procedural haemorrhage [Unknown]

NARRATIVE: CASE EVENT DATE: 20150509
